FAERS Safety Report 10064450 (Version 2)
Quarter: 2014Q2

REPORT INFORMATION
  Report Type: Spontaneous
  Country: PL (occurrence: PL)
  Receive Date: 20140408
  Receipt Date: 20140408
  Transmission Date: 20141212
  Serious: Yes (Other)
  Sender: FDA-Public Use
  Company Number: PL-ROCHE-1358208

PATIENT
  Sex: Female

DRUGS (1)
  1. TRASTUZUMAB [Suspect]
     Indication: BREAST CANCER
     Route: 065

REACTIONS (7)
  - Ejection fraction decreased [Unknown]
  - Cardiovascular insufficiency [Unknown]
  - Supraventricular tachycardia [Unknown]
  - Heart valve incompetence [Unknown]
  - Atrioventricular block [Unknown]
  - Coronary artery disease [Unknown]
  - Arrhythmia [Unknown]
